FAERS Safety Report 25331216 (Version 1)
Quarter: 2025Q2

REPORT INFORMATION
  Report Type: Spontaneous
  Country: US (occurrence: None)
  Receive Date: 20250519
  Receipt Date: 20250519
  Transmission Date: 20250717
  Serious: Yes (Hospitalization)
  Sender: FDA-CTU
  Company Number: None

PATIENT
  Sex: Male

DRUGS (12)
  1. LENALIDOMIDE [Suspect]
     Active Substance: LENALIDOMIDE
     Indication: Plasma cell myeloma
     Dosage: FREQUENCY : DAILY;?
     Route: 048
     Dates: start: 20250130
  2. ACYCLOVIR [Concomitant]
     Active Substance: ACYCLOVIR
  3. ASCORBIC ACD [Concomitant]
  4. ASPIRIN [Concomitant]
     Active Substance: ASPIRIN
  5. ATORVASTATIN [Concomitant]
     Active Substance: ATORVASTATIN
  6. ATORVASTATIN [Concomitant]
     Active Substance: ATORVASTATIN
  7. DEXAMETHASON TAB [Concomitant]
  8. LATANOPROST SOL [Concomitant]
  9. MULTIVITAMIN TAB ADULTS [Concomitant]
  10. REVLIMID CAP [Concomitant]
  11. ITAMSULOSIN CAP [Concomitant]
  12. TIMOLOL GEL SOL [Concomitant]

REACTIONS (1)
  - Rectal haemorrhage [None]
